FAERS Safety Report 10329842 (Version 1)
Quarter: 2014Q3

REPORT INFORMATION
  Report Type: Spontaneous
  Country: FR (occurrence: FR)
  Receive Date: 20140721
  Receipt Date: 20140721
  Transmission Date: 20150326
  Serious: Yes (Life-Threatening, Hospitalization, Other)
  Sender: FDA-Public Use
  Company Number: FR-PFIZER INC-2014202092

PATIENT
  Age: 42 Year
  Sex: Female
  Weight: 49 kg

DRUGS (4)
  1. VALIUM [Suspect]
     Active Substance: DIAZEPAM
     Dosage: UNK, SINGLE
     Route: 048
     Dates: start: 20140625
  2. TRAMADOL [Concomitant]
     Active Substance: TRAMADOL
  3. EFFEXOR LP [Suspect]
     Active Substance: VENLAFAXINE HYDROCHLORIDE
     Dosage: 60 DF (75 MG PROLONGED RELEASE CAPSULE), SINGLE
     Route: 048
     Dates: start: 20140625
  4. LAMALINE [Concomitant]
     Active Substance: ACETAMINOPHEN\CAFFEINE\OPIUM

REACTIONS (5)
  - Toxicity to various agents [Unknown]
  - Cardiac failure [Recovered/Resolved]
  - Electrocardiogram abnormal [Unknown]
  - Coma [Recovered/Resolved]
  - Hypoglycaemia [Recovered/Resolved]

NARRATIVE: CASE EVENT DATE: 20140625
